FAERS Safety Report 15405807 (Version 1)
Quarter: 2018Q3

REPORT INFORMATION
  Report Type: Spontaneous
  Country: US (occurrence: US)
  Receive Date: 20180920
  Receipt Date: 20180920
  Transmission Date: 20181010
  Serious: No
  Sender: FDA-Public Use
  Company Number: US-TEVA-816483ACC

PATIENT
  Sex: Female

DRUGS (1)
  1. NEOMYCIN. [Suspect]
     Active Substance: NEOMYCIN

REACTIONS (1)
  - Hypersensitivity [Unknown]
